FAERS Safety Report 10453681 (Version 1)
Quarter: 2014Q3

REPORT INFORMATION
  Report Type: Spontaneous
  Country: US (occurrence: US)
  Receive Date: 20140915
  Receipt Date: 20140915
  Transmission Date: 20150326
  Serious: No
  Sender: FDA-Public Use
  Company Number: US-BRISTOL-MYERS SQUIBB COMPANY-21226147

PATIENT
  Age: 67 Year
  Sex: Female
  Weight: 142.5 kg

DRUGS (5)
  1. RESTASIS [Concomitant]
     Active Substance: CYCLOSPORINE
  2. CALCIUM [Concomitant]
     Active Substance: CALCIUM
  3. ELIQUIS [Suspect]
     Active Substance: APIXABAN
     Dosage: TWO DOSES ON FRIDAY, SATURDAY AND SUNDAY, AND I TOOK A DOSE THIS MORNING
     Dates: start: 201407
  4. CLONAZEPAM. [Concomitant]
     Active Substance: CLONAZEPAM
  5. MAGNESIUM [Concomitant]
     Active Substance: MAGNESIUM

REACTIONS (2)
  - Contusion [Unknown]
  - Gastritis [Unknown]

NARRATIVE: CASE EVENT DATE: 201407
